FAERS Safety Report 8740297 (Version 2)
Quarter: 2013Q4

REPORT INFORMATION
  Report Type: Spontaneous
  Country: US (occurrence: US)
  Receive Date: 20120823
  Receipt Date: 20131101
  Transmission Date: 20140711
  Serious: No
  Sender: FDA-Public Use
  Company Number: US-009507513-1208USA004152

PATIENT
  Age: 40 Year
  Sex: Female

DRUGS (1)
  1. GANIRELIX ACETATE INJECTION [Suspect]
     Indication: ASSISTED FERTILISATION
     Dosage: 250 MICROGRAM, QD
     Route: 058
     Dates: start: 201207

REACTIONS (3)
  - Injection site urticaria [Recovering/Resolving]
  - Injection site haemorrhage [Recovering/Resolving]
  - Injection site pruritus [Recovering/Resolving]
